FAERS Safety Report 6728072-X (Version None)
Quarter: 2010Q2

REPORT INFORMATION
  Report Type: 
  Country: None (occurrence: None)
  Receive Date: 20100517
  Receipt Date: 20100506
  Transmission Date: 20101027
  Serious: Yes (Hospitalization)
  Sender: FDA-Public Use
  Company Number: PHHY2010FR29433

PATIENT
  Sex: Female
  Weight: 70.2 kg

DRUGS (5)
  1. STALEVO 100 [Suspect]
     Indication: PARKINSON'S DISEASE
     Dosage: 3 DF DAILY
     Dates: start: 20100101, end: 20100416
  2. DIOSMIN (NCH) [Suspect]
     Dosage: 600 MG, QD
     Dates: end: 20100414
  3. CRESTOR [Concomitant]
     Dosage: 10 MG QD
  4. ZOLPIDEM [Concomitant]
     Dosage: 10 MG QD
  5. KENZEN [Concomitant]
     Dosage: 8 MG, QD

REACTIONS (3)
  - COLITIS [None]
  - DIARRHOEA [None]
  - VOMITING [None]
